FAERS Safety Report 9287902 (Version 1)
Quarter: 2013Q2

REPORT INFORMATION
  Report Type: Spontaneous
  Country: CA (occurrence: CA)
  Receive Date: 20130514
  Receipt Date: 20130514
  Transmission Date: 20140414
  Serious: Yes (Other)
  Sender: FDA-Public Use
  Company Number: CA-TEVA-404690USA

PATIENT
  Age: 52 Year
  Sex: Female
  Weight: 74 kg

DRUGS (7)
  1. RATIO-ECTOSONE [Suspect]
     Dosage: LOTION
     Route: 061
  2. RATIO-ECTOSONE [Interacting]
     Route: 062
  3. CITALOPRAM [Interacting]
     Route: 048
  4. PANTOPRAZOLE [Interacting]
     Dosage: 80 MILLIGRAM DAILY;
     Route: 048
  5. ERFA NATURAL [Concomitant]
  6. SULFASALAZINE [Concomitant]
  7. TOPIRAMATE [Concomitant]

REACTIONS (10)
  - Blood potassium decreased [Unknown]
  - Cardiac murmur [Unknown]
  - Dehydration [Unknown]
  - Dizziness [Unknown]
  - Drug interaction [Unknown]
  - Fatigue [Unknown]
  - Muscle spasms [Unknown]
  - Syncope [Unknown]
  - Thirst [Unknown]
  - Vomiting [Unknown]
